FAERS Safety Report 4607343-7 (Version None)
Quarter: 2005Q1

REPORT INFORMATION
  Report Type: 
  Country: None (occurrence: None)
  Receive Date: 20050310
  Receipt Date: 20050225
  Transmission Date: 20050727
  Serious: Yes (Other)
  Sender: FDA-Public Use
  Company Number: 6013079F

PATIENT
  Age: 76 Year
  Sex: Male

DRUGS (5)
  1. NIASPAN [Suspect]
     Indication: BLOOD CHOLESTEROL INCREASED
     Dosage: 375 MG QHS; PO
     Route: 048
     Dates: start: 20050119, end: 20050124
  2. ATENOLOL [Concomitant]
  3. RABEPRAZOLE SODIUM [Concomitant]
  4. NIFEDIPINE [Concomitant]
  5. ACETYLSALICYLIC ACID SRT [Concomitant]

REACTIONS (2)
  - HYPERSENSITIVITY [None]
  - SKIN EXFOLIATION [None]
